FAERS Safety Report 23232158 (Version 1)
Quarter: 2023Q4

REPORT INFORMATION
  Report Type: Spontaneous
  Country: JP (occurrence: JP)
  Receive Date: 20231127
  Receipt Date: 20231127
  Transmission Date: 20240109
  Serious: Yes (Other)
  Sender: FDA-Public Use
  Company Number: JP-BAUSCHBL-2023BNL012101

PATIENT
  Age: 57 Year
  Sex: Male

DRUGS (1)
  1. DEXAMETHASONE [Suspect]
     Active Substance: DEXAMETHASONE
     Indication: Brain oedema
     Route: 065

REACTIONS (3)
  - Psychiatric symptom [Unknown]
  - Condition aggravated [Unknown]
  - Therapy non-responder [Unknown]
